FAERS Safety Report 8419323 (Version 4)
Quarter: 2012Q4

REPORT INFORMATION
  Report Type: 
  Country: GB (occurrence: GB)
  Receive Date: 20120221
  Receipt Date: 20121120
  Transmission Date: 20130627
  Serious: Yes (Death, Hospitalization, Other)
  Sender: FDA-Public Use
  Company Number: PHFR2012GB001072

PATIENT
  Age: 75 Year
  Sex: Male

DRUGS (3)
  1. CLOZARIL [Suspect]
     Indication: SCHIZOPHRENIA
     Dosage: 125 mg, daily
     Route: 048
     Dates: start: 20110503, end: 20120206
  2. MADOPAR DISPERSIBLE [Concomitant]
     Dosage: 125 mg, daily
     Route: 048
  3. ROTIGOTINE [Concomitant]
     Dosage: 2 mg, daily
     Route: 062

REACTIONS (8)
  - Parkinson^s disease [Fatal]
  - Infection [Unknown]
  - Fall [Not Recovered/Not Resolved]
  - Hypophagia [Unknown]
  - Loss of consciousness [Unknown]
  - Hypothermia [Not Recovered/Not Resolved]
  - Pneumonia [Unknown]
  - Dementia [Unknown]
